FAERS Safety Report 5793277-1 (Version None)
Quarter: 2008Q2

REPORT INFORMATION
  Report Type: 
  Country: None (occurrence: None)
  Receive Date: 20080626
  Receipt Date: 20080626
  Transmission Date: 20081010
  Serious: No
  Sender: FDA-Public Use
  Company Number: None

PATIENT
  Age: 83 Year
  Sex: Female
  Weight: 52.6 kg

DRUGS (1)
  1. DOXORUBICIN LIPOSOME [Suspect]
     Indication: MYCOSIS FUNGOIDES
     Dosage: 32 MG X1 IV
     Route: 042
     Dates: start: 20080625

REACTIONS (1)
  - BACK PAIN [None]
